FAERS Safety Report 21968694 (Version 1)
Quarter: 2023Q1

REPORT INFORMATION
  Report Type: Spontaneous
  Country: CN (occurrence: CN)
  Receive Date: 20230208
  Receipt Date: 20230208
  Transmission Date: 20230417
  Serious: Yes (Other)
  Sender: FDA-Public Use
  Company Number: CN-PFIZER INC-PV202300023020

PATIENT
  Age: 2 Year
  Sex: Male
  Weight: 13 kg

DRUGS (2)
  1. AZITHROMYCIN [Suspect]
     Active Substance: AZITHROMYCIN
     Indication: Bronchitis
     Dosage: 0.1 G, 1X/DAY
     Route: 048
     Dates: start: 20230120, end: 20230125
  2. CHLORPHENIRAMINE MALEATE\GUAIFENESIN\METHYLEPHEDRINE HYDROCHLORIDE, (+ [Suspect]
     Active Substance: CHLORPHENIRAMINE MALEATE\GUAIFENESIN\METHYLEPHEDRINE HYDROCHLORIDE, (+/-)-
     Indication: Bronchitis
     Dosage: 25 MG, 3X/DAY
     Route: 048
     Dates: start: 20230120, end: 20230125

REACTIONS (2)
  - Rash maculo-papular [Recovering/Resolving]
  - Pruritus [Recovering/Resolving]

NARRATIVE: CASE EVENT DATE: 20230122
